FAERS Safety Report 10012868 (Version 1)
Quarter: 2014Q1

REPORT INFORMATION
  Report Type: Spontaneous
  Country: TR (occurrence: TR)
  Receive Date: 20140314
  Receipt Date: 20140314
  Transmission Date: 20141002
  Serious: Yes (Other)
  Sender: FDA-Public Use
  Company Number: TR-ACTAVIS-2014-04347

PATIENT
  Age: 98 Year
  Sex: Male

DRUGS (1)
  1. PANTOPRAZOLE (UNKNOWN) [Suspect]
     Indication: UPPER GASTROINTESTINAL HAEMORRHAGE
     Dosage: 80 MG, UNKNOWN (8 MG/H)
     Route: 042

REACTIONS (1)
  - Thrombocytopenia [Recovered/Resolved]
